FAERS Safety Report 20025587 (Version 1)
Quarter: 2021Q4

REPORT INFORMATION
  Report Type: Spontaneous
  Country: DE (occurrence: DE)
  Receive Date: 20211102
  Receipt Date: 20211102
  Transmission Date: 20220303
  Serious: Yes (Other)
  Sender: FDA-Public Use
  Company Number: DE-UCBSA-2021047508

PATIENT
  Age: 62 Year
  Sex: Male

DRUGS (4)
  1. METHOTREXATE SODIUM [Interacting]
     Active Substance: METHOTREXATE SODIUM
     Indication: Psoriatic arthropathy
     Dosage: UNK
  2. VIMPAT [Interacting]
     Active Substance: LACOSAMIDE
     Dosage: UNK
     Route: 048
  3. VIMPAT [Interacting]
     Active Substance: LACOSAMIDE
     Dosage: UNK
     Route: 048
  4. VIMPAT [Interacting]
     Active Substance: LACOSAMIDE
     Dosage: 600 MG, DAILY

REACTIONS (4)
  - Psoriatic arthropathy [Unknown]
  - Seizure [Unknown]
  - Sleep disorder [Unknown]
  - Drug interaction [Unknown]
